FAERS Safety Report 8957423 (Version 1)
Quarter: 2012Q4

REPORT INFORMATION
  Report Type: 
  Country: AU (occurrence: AU)
  Receive Date: 20121211
  Receipt Date: 20121211
  Transmission Date: 20130627
  Serious: Yes (Other)
  Sender: FDA-Public Use
  Company Number: PHHY2012AU106852

PATIENT
  Age: 37 Year
  Sex: Male

DRUGS (10)
  1. CLOZARIL [Suspect]
     Indication: SCHIZOPHRENIA
     Dosage: 550 mg QD
     Route: 048
     Dates: start: 20050408
  2. CLOZARIL [Suspect]
     Dosage: 300 mg
     Route: 048
     Dates: end: 20121116
  3. OLANZAPINE [Concomitant]
     Dosage: 10 mg, UNK
     Dates: start: 20121116
  4. DIABEX [Concomitant]
     Indication: TYPE 2 DIABETES MELLITUS
     Dosage: 200 mg
     Route: 048
  5. FISH OIL [Concomitant]
     Dosage: 3 DF, BID
     Route: 048
  6. LINAGLIPTIN [Concomitant]
     Indication: TYPE 2 DIABETES MELLITUS
     Dosage: 5 mg
     Route: 048
  7. MIXTARD ^NOVO NORDISK^ [Concomitant]
     Indication: TYPE 2 DIABETES MELLITUS
     Dosage: 45 u  before breakfats and 45 u before dinner
     Route: 058
  8. RAMIPRIL [Concomitant]
     Indication: TYPE 2 DIABETES MELLITUS
     Dosage: 1.2 mg, UNK
     Route: 048
  9. SIMVASTATIN [Concomitant]
     Dosage: 1 DF, UNK
     Route: 048
  10. ZOLOFT [Concomitant]
     Indication: OBSESSIVE-COMPULSIVE DISORDER
     Dosage: 150 mg, QD (mane)
     Route: 048

REACTIONS (13)
  - Mental impairment [Unknown]
  - Pancytopenia [Unknown]
  - Respiratory tract infection [Unknown]
  - Hepatic function abnormal [Recovering/Resolving]
  - Agranulocytosis [Unknown]
  - Obsessive-compulsive disorder [Unknown]
  - Type 2 diabetes mellitus [Unknown]
  - Malaise [Unknown]
  - Blood lactate dehydrogenase increased [Unknown]
  - Leukopenia [Recovered/Resolved]
  - White blood cell count decreased [Recovered/Resolved]
  - Neutropenia [Recovered/Resolved]
  - Neutrophil count decreased [Recovered/Resolved]
